FAERS Safety Report 25155545 (Version 2)
Quarter: 2025Q2

REPORT INFORMATION
  Report Type: Spontaneous
  Country: US (occurrence: US)
  Receive Date: 20250403
  Receipt Date: 20250417
  Transmission Date: 20250716
  Serious: Yes (Other)
  Sender: GRIFOLS
  Company Number: US-IGSA-BIG0033909

PATIENT
  Age: 36 Year
  Sex: Male
  Weight: 77 kg

DRUGS (19)
  1. GAMMAKED [Suspect]
     Active Substance: HUMAN IMMUNOGLOBULIN G
     Indication: IgG deficiency
     Dosage: 60 GRAM, Q.4WK.
     Route: 042
  2. GAMMAKED [Suspect]
     Active Substance: HUMAN IMMUNOGLOBULIN G
     Dosage: 60 GRAM, Q.4WK.
     Route: 042
     Dates: start: 20250119, end: 20250119
  3. GAMMAKED [Suspect]
     Active Substance: HUMAN IMMUNOGLOBULIN G
     Route: 042
  4. APAP [Concomitant]
     Active Substance: ACETAMINOPHEN
     Indication: Premedication
  5. DIPHENHYDRAMINE [Concomitant]
     Active Substance: DIPHENHYDRAMINE
     Indication: Premedication
  6. LEVOTHYROXINE [Concomitant]
     Active Substance: LEVOTHYROXINE
  7. GABAPENTIN [Concomitant]
     Active Substance: GABAPENTIN
  8. METHYLPHENIDATE [Concomitant]
     Active Substance: METHYLPHENIDATE
  9. NYSTATIN [Concomitant]
     Active Substance: NYSTATIN
  10. RIFAMPIN [Concomitant]
     Active Substance: RIFAMPIN
  11. CYCLOBENZAPRINE [Concomitant]
     Active Substance: CYCLOBENZAPRINE
  12. CYTOMEL [Concomitant]
     Active Substance: LIOTHYRONINE SODIUM
  13. PRAVASTATIN [Concomitant]
     Active Substance: PRAVASTATIN
  14. NALTREXONE [Concomitant]
     Active Substance: NALTREXONE
  15. MARAVIROC [Concomitant]
     Active Substance: MARAVIROC
  16. VITAMIN D3 [Concomitant]
     Active Substance: CHOLECALCIFEROL
  17. FLUOXETINE [Concomitant]
     Active Substance: FLUOXETINE HYDROCHLORIDE
  18. BUPROPION [Concomitant]
     Active Substance: BUPROPION
  19. METHYLENE BLUE [Concomitant]
     Active Substance: METHYLENE BLUE

REACTIONS (2)
  - Rash [Recovered/Resolved]
  - Urticaria [Recovered/Resolved]

NARRATIVE: CASE EVENT DATE: 20250119
